FAERS Safety Report 12388600 (Version 1)
Quarter: 2016Q2

REPORT INFORMATION
  Report Type: Spontaneous
  Country: US (occurrence: None)
  Receive Date: 20160519
  Receipt Date: 20160519
  Transmission Date: 20160815
  Serious: Yes (Life-Threatening, Hospitalization, Disabling)
  Sender: FDA-Public Use
  Company Number: None

PATIENT
  Age: 55 Year
  Sex: Male
  Weight: 106.14 kg

DRUGS (15)
  1. NORVASV [Concomitant]
  2. VITAMIN D [Concomitant]
     Active Substance: CHOLECALCIFEROL
  3. DOBUTAMINE [Suspect]
     Active Substance: DOBUTAMINE\DOBUTAMINE HYDROCHLORIDE
     Indication: CARDIAC STRESS TEST
     Dates: start: 20131203, end: 20131203
  4. PEPCID [Concomitant]
     Active Substance: FAMOTIDINE
  5. LASIX [Concomitant]
     Active Substance: FUROSEMIDE
  6. PROPRANOLOL [Concomitant]
     Active Substance: PROPRANOLOL\PROPRANOLOL HYDROCHLORIDE
  7. LISINOPRIL. [Concomitant]
     Active Substance: LISINOPRIL
  8. NUERONTIN [Concomitant]
  9. CLONEAZEPAM [Concomitant]
  10. ASPIRIN. [Concomitant]
     Active Substance: ASPIRIN
  11. LOVAZA [Concomitant]
     Active Substance: OMEGA-3-ACID ETHYL ESTERS
  12. SIMVASTATIN. [Concomitant]
     Active Substance: SIMVASTATIN
  13. MAGNESIUM [Concomitant]
     Active Substance: MAGNESIUM
  14. SODIUM BICARBONATE. [Concomitant]
     Active Substance: SODIUM BICARBONATE
  15. CLOPIDOGRIL [Concomitant]

REACTIONS (4)
  - Myocardial infarction [None]
  - Seizure [None]
  - Headache [None]
  - Coronary artery occlusion [None]

NARRATIVE: CASE EVENT DATE: 20131203
